FAERS Safety Report 9231460 (Version 1)
Quarter: 2013Q2

REPORT INFORMATION
  Report Type: Report from Study
  Country: CA (occurrence: CA)
  Receive Date: 20130415
  Receipt Date: 20130415
  Transmission Date: 20140414
  Serious: Yes (Hospitalization)
  Sender: FDA-Public Use
  Company Number: PHHY2013CA036171

PATIENT
  Age: 90 Year
  Sex: Male

DRUGS (3)
  1. TASIGNA [Suspect]
     Indication: CHRONIC MYELOID LEUKAEMIA
     Dosage: 300 MG, BID
     Route: 048
     Dates: start: 20130307, end: 20130308
  2. LIPITOR [Concomitant]
  3. HYDREA [Concomitant]

REACTIONS (5)
  - Lipase increased [Unknown]
  - Myocardial infarction [Unknown]
  - Chest pain [Unknown]
  - Skin atrophy [Unknown]
  - Contusion [Unknown]
